FAERS Safety Report 4613146-X (Version None)
Quarter: 2005Q1

REPORT INFORMATION
  Report Type: 
  Country: None (occurrence: None)
  Receive Date: 20050316
  Receipt Date: 20050225
  Transmission Date: 20050727
  Serious: Yes (Hospitalization, Other)
  Sender: FDA-Public Use
  Company Number: USA050290614

PATIENT
  Age: 31 Year
  Sex: Female
  Weight: 74 kg

DRUGS (3)
  1. CYMBALTA [Suspect]
     Indication: DEPRESSION
     Dosage: 60 MG DAY
     Dates: start: 20041214
  2. ORAL CONTRACEPTIVE NOS [Concomitant]
  3. VITAMINS [Concomitant]

REACTIONS (5)
  - BLOOD CALCIUM DECREASED [None]
  - BLOOD CHLORIDE INCREASED [None]
  - BLOOD CHOLESTEROL INCREASED [None]
  - MEAN CELL VOLUME INCREASED [None]
  - PANCREATITIS ACUTE [None]
